FAERS Safety Report 6525296-1 (Version None)
Quarter: 2010Q1

REPORT INFORMATION
  Report Type: 
  Country: None (occurrence: None)
  Receive Date: 20100104
  Receipt Date: 20091223
  Transmission Date: 20100710
  Serious: Yes (Hospitalization, Other)
  Sender: FDA-Public Use
  Company Number: GB-SANOFI-AVENTIS-2009SA010921

PATIENT
  Sex: Female

DRUGS (4)
  1. DOCETAXEL [Interacting]
     Indication: BREAST CANCER METASTATIC
  2. OMEPRAZOLE [Suspect]
  3. DOXORUBICIN HCL [Suspect]
     Indication: BREAST CANCER METASTATIC
  4. ERYTHROMYCIN [Interacting]
     Indication: PROPHYLAXIS
     Dates: start: 19950101

REACTIONS (7)
  - ABDOMINAL DISTENSION [None]
  - DIARRHOEA [None]
  - DRUG INTERACTION [None]
  - HAEMATEMESIS [None]
  - JAUNDICE CHOLESTATIC [None]
  - PSEUDOMEMBRANOUS COLITIS [None]
  - VOMITING [None]
